FAERS Safety Report 5141614-3 (Version None)
Quarter: 2006Q4

REPORT INFORMATION
  Report Type: 
  Country: None (occurrence: None)
  Receive Date: 20061026
  Receipt Date: 20061024
  Transmission Date: 20070319
  Serious: Yes (Other)
  Sender: FDA-Public Use
  Company Number: 008943

PATIENT
  Sex: Female

DRUGS (3)
  1. MEDROXYPROGESTERONE ACETATE [Suspect]
     Dosage: ORAL
     Route: 048
     Dates: start: 20001023, end: 20040916
  2. PREMARIN [Suspect]
     Dosage: ORAL
     Route: 048
     Dates: start: 20001023, end: 20040916
  3. PREMPRO [Suspect]
     Dosage: ORAL
     Route: 048
     Dates: start: 20001023, end: 20040916

REACTIONS (1)
  - BREAST CANCER IN SITU [None]
